FAERS Safety Report 17560880 (Version 8)
Quarter: 2020Q3

REPORT INFORMATION
  Report Type: Report from Study
  Country: US (occurrence: US)
  Receive Date: 20200319
  Receipt Date: 20200923
  Transmission Date: 20201102
  Serious: Yes (Death, Life-Threatening, Other)
  Sender: FDA-Public Use
  Company Number: NVSC2020US075217

PATIENT
  Age: 73 Year
  Sex: Female
  Weight: 88 kg

DRUGS (2)
  1. RASBURICASE [Concomitant]
     Active Substance: RASBURICASE
     Indication: TUMOUR LYSIS SYNDROME
     Dosage: UNK
     Route: 065
  2. KYMRIAH [Suspect]
     Active Substance: TISAGENLECLEUCEL
     Indication: DIFFUSE LARGE B-CELL LYMPHOMA
     Dosage: 2.2X10^8 VIABLE CELLS (44 ML)
     Route: 042
     Dates: start: 20200310, end: 20200310

REACTIONS (24)
  - Hypofibrinogenaemia [Fatal]
  - Serum ferritin increased [Fatal]
  - Encephalopathy [Unknown]
  - Blood potassium increased [Unknown]
  - Mental status changes [Fatal]
  - Atrial fibrillation [Not Recovered/Not Resolved]
  - Hypotension [Fatal]
  - Tachycardia [Fatal]
  - Renal failure [Fatal]
  - International normalised ratio increased [Fatal]
  - Confusional state [Unknown]
  - Urine output decreased [Fatal]
  - Immune effector cell-associated neurotoxicity syndrome [Unknown]
  - Anuria [Fatal]
  - Azotaemia [Unknown]
  - Unresponsive to stimuli [Unknown]
  - Pyrexia [Fatal]
  - Respiratory distress [Fatal]
  - White blood cell count decreased [Unknown]
  - Cytokine release syndrome [Fatal]
  - N-terminal prohormone brain natriuretic peptide increased [Unknown]
  - C-reactive protein increased [Fatal]
  - Blood creatinine increased [Fatal]
  - Platelet count decreased [Unknown]

NARRATIVE: CASE EVENT DATE: 20200311
